FAERS Safety Report 22608975 (Version 1)
Quarter: 2023Q2

REPORT INFORMATION
  Report Type: Report from Study
  Country: CN (occurrence: CN)
  Receive Date: 20230616
  Receipt Date: 20230616
  Transmission Date: 20230722
  Serious: Yes (Death)
  Sender: FDA-Public Use
  Company Number: CN-JNJFOC-20230616544

PATIENT
  Age: 55 Year
  Sex: Female
  Weight: 55 kg

DRUGS (12)
  1. AMIVANTAMAB [Suspect]
     Active Substance: AMIVANTAMAB
     Indication: Non-small cell lung cancer
     Dosage: SC-CF, 25R VIAL
     Route: 058
     Dates: start: 20230525, end: 20230601
  2. LOPROFEN [Concomitant]
     Indication: Pain in extremity
     Route: 048
     Dates: start: 20230505, end: 20230529
  3. RIVAROXABAN [Concomitant]
     Active Substance: RIVAROXABAN
     Indication: Prophylaxis
     Route: 048
     Dates: start: 20230527
  4. DECADRON [Concomitant]
     Active Substance: DEXAMETHASONE
     Indication: Thrombocytopenia
     Route: 048
     Dates: start: 20230530
  5. TRAMADOL HYDROCHLORIDE [Concomitant]
     Active Substance: TRAMADOL HYDROCHLORIDE
     Indication: Pain in extremity
     Route: 048
     Dates: start: 20230530
  6. GLUTATHIONE [Concomitant]
     Active Substance: GLUTATHIONE
     Indication: Alanine aminotransferase increased
     Route: 048
     Dates: start: 20230531
  7. GLUTATHIONE [Concomitant]
     Active Substance: GLUTATHIONE
     Indication: Aspartate aminotransferase increased
  8. VITAMINS NOS [Concomitant]
     Active Substance: VITAMINS
     Indication: Decreased appetite
     Route: 042
     Dates: start: 20230606, end: 20230606
  9. VITAMINS NOS [Concomitant]
     Active Substance: VITAMINS
     Indication: Hyponatraemia
  10. VITAMINS NOS [Concomitant]
     Active Substance: VITAMINS
     Indication: Hypochloraemia
  11. OPRELVEKIN [Concomitant]
     Active Substance: OPRELVEKIN
     Indication: Thrombocytopenia
     Route: 058
     Dates: start: 20230606, end: 20230606
  12. SODIUM ACETATE RINGER [Concomitant]
     Indication: Decreased appetite
     Route: 042
     Dates: start: 20230606, end: 20230606

REACTIONS (1)
  - Sudden cardiac death [Fatal]

NARRATIVE: CASE EVENT DATE: 20230606
